FAERS Safety Report 4980761-3 (Version None)
Quarter: 2006Q2

REPORT INFORMATION
  Report Type: 
  Country: None (occurrence: None)
  Receive Date: 20060424
  Receipt Date: 20051006
  Transmission Date: 20061013
  Serious: Yes (Death, Hospitalization, Other)
  Sender: FDA-Public Use
  Company Number: US-MERCK-0510USA05540

PATIENT
  Age: 74 Year
  Sex: Female
  Weight: 91 kg

DRUGS (2)
  1. VIOXX [Suspect]
     Indication: SPONDYLITIS
     Route: 048
     Dates: start: 19990101, end: 20040101
  2. VIOXX [Suspect]
     Indication: MONARTHRITIS
     Route: 048
     Dates: start: 19990101, end: 20040101

REACTIONS (46)
  - APNOEA [None]
  - ATELECTASIS [None]
  - ATRIAL FIBRILLATION [None]
  - BLOOD ELECTROLYTES DECREASED [None]
  - CARDIAC FAILURE CONGESTIVE [None]
  - CARDIOMEGALY [None]
  - CEREBRAL ISCHAEMIA [None]
  - CEREBROVASCULAR ACCIDENT [None]
  - COLITIS ISCHAEMIC [None]
  - DECUBITUS ULCER [None]
  - DEEP VEIN THROMBOSIS [None]
  - DEHYDRATION [None]
  - DELIRIUM [None]
  - DIABETES MELLITUS NON-INSULIN-DEPENDENT [None]
  - DILATATION VENTRICULAR [None]
  - DIVERTICULUM [None]
  - DYSPHAGIA [None]
  - FLUID OVERLOAD [None]
  - FUNGAL SKIN INFECTION [None]
  - HYPERKALAEMIA [None]
  - HYPERTENSION [None]
  - HYPOMAGNESAEMIA [None]
  - HYPONATRAEMIA [None]
  - HYPOTENSION [None]
  - LIPOMA [None]
  - LOSS OF CONSCIOUSNESS [None]
  - MAJOR DEPRESSION [None]
  - MENTAL STATUS CHANGES [None]
  - METABOLIC ACIDOSIS [None]
  - MYOCARDIAL INFARCTION [None]
  - PLEURAL EFFUSION [None]
  - PNEUMONIA [None]
  - PSEUDOMONAS INFECTION [None]
  - PSYCHOTIC DISORDER [None]
  - PYELONEPHRITIS [None]
  - RENAL FAILURE [None]
  - RENAL FAILURE ACUTE [None]
  - SEPSIS [None]
  - SINUS DISORDER [None]
  - SMALL INTESTINAL OBSTRUCTION [None]
  - SYNCOPE [None]
  - SYSTEMIC CANDIDA [None]
  - TYMPANIC MEMBRANE PERFORATION [None]
  - URINARY TRACT INFECTION [None]
  - UROSEPSIS [None]
  - VENTRICULAR HYPERTROPHY [None]
